FAERS Safety Report 8877562 (Version 1)
Quarter: 2012Q4

REPORT INFORMATION
  Report Type: 
  Country: AU (occurrence: AU)
  Receive Date: 20121024
  Receipt Date: 20121024
  Transmission Date: 20130627
  Serious: Yes (Other)
  Sender: FDA-Public Use
  Company Number: AU-B.I. PHARMACEUTICALS,INC./RIDGEFIELD-2012-AU-01714AU

PATIENT
  Sex: Male
  Weight: 99 kg

DRUGS (2)
  1. PRADAXA [Suspect]
     Indication: ATRIAL FIBRILLATION
     Dosage: 220 mg
     Dates: start: 20110913, end: 201208
  2. DIURETIC [Concomitant]

REACTIONS (6)
  - Femur fracture [Unknown]
  - Femoral neck fracture [Unknown]
  - Fall [Unknown]
  - Renal failure [Unknown]
  - Cardiomyopathy [Unknown]
  - Condition aggravated [Unknown]
